FAERS Safety Report 4461058-7 (Version None)
Quarter: 2004Q3

REPORT INFORMATION
  Report Type: 
  Country: None (occurrence: None)
  Receive Date: 20040928
  Receipt Date: 20040917
  Transmission Date: 20050211
  Serious: Yes (Other)
  Sender: FDA-Public Use
  Company Number: FR-JNJFOC-20040906502

PATIENT
  Age: 43 Year
  Sex: Female

DRUGS (2)
  1. EPITOMAX [Suspect]
     Route: 049
     Dates: start: 20040601, end: 20040915
  2. EPITOMAX [Suspect]
     Indication: PUBIC PAIN
     Route: 049
     Dates: start: 20040601, end: 20040915

REACTIONS (3)
  - BALANCE DISORDER [None]
  - PYREXIA [None]
  - TREMOR [None]
